FAERS Safety Report 20919496 (Version 1)
Quarter: 2022Q2

REPORT INFORMATION
  Report Type: Spontaneous
  Country: US (occurrence: None)
  Receive Date: 20220603
  Receipt Date: 20220603
  Transmission Date: 20220721
  Serious: Yes (Disabling)
  Sender: FDA-Public Use
  Company Number: None

PATIENT
  Age: 55 Year
  Sex: Male
  Weight: 102 kg

DRUGS (1)
  1. POLOCAINE [Suspect]
     Active Substance: MEPIVACAINE HYDROCHLORIDE
     Indication: Anaesthesia
     Dosage: OTHER FREQUENCY : ONCE;?
     Route: 037
     Dates: start: 20220525

REACTIONS (2)
  - Paraplegia [None]
  - Central nervous system inflammation [None]

NARRATIVE: CASE EVENT DATE: 20220525
